FAERS Safety Report 5518736-8 (Version None)
Quarter: 2007Q4

REPORT INFORMATION
  Report Type: 
  Country: None (occurrence: None)
  Receive Date: 20071115
  Receipt Date: 20060911
  Transmission Date: 20080405
  Serious: No
  Sender: FDA-Public Use
  Company Number: US-BOEHRINGER INGELHEIM PHARMACEUTICALS, INC.-2006-BP-10612BP

PATIENT
  Sex: Male

DRUGS (7)
  1. FLOMAX [Suspect]
     Indication: BENIGN PROSTATIC HYPERPLASIA
     Route: 048
  2. FLOMAX [Suspect]
     Route: 048
  3. DYAZIDE [Concomitant]
  4. PROSCAR [Concomitant]
  5. TOPROL-XL [Concomitant]
  6. FOLIC ACID [Concomitant]
  7. ZOCOR [Concomitant]

REACTIONS (1)
  - NOCTURIA [None]
